FAERS Safety Report 8002583-1 (Version None)
Quarter: 2011Q4

REPORT INFORMATION
  Report Type: 
  Country: None (occurrence: None)
  Receive Date: 20111222
  Receipt Date: 20101006
  Transmission Date: 20120403
  Serious: Yes (Hospitalization)
  Sender: FDA-Public Use
  Company Number: US-GLAXOSMITHKLINE-A0885686A

PATIENT
  Age: 63 Year
  Sex: Female

DRUGS (2)
  1. AVANDAMET [Suspect]
     Indication: DIABETES MELLITUS
     Route: 048
  2. AVANDIA [Suspect]
     Indication: TYPE 2 DIABETES MELLITUS
     Dosage: 8MG PER DAY
     Route: 048
     Dates: start: 20030224, end: 20050922

REACTIONS (5)
  - DEPRESSION [None]
  - CARDIAC VALVE DISEASE [None]
  - ANXIETY [None]
  - HEART RATE INCREASED [None]
  - CORONARY ARTERY DISEASE [None]
